FAERS Safety Report 4352385-2 (Version None)
Quarter: 2004Q2

REPORT INFORMATION
  Report Type: 
  Country: None (occurrence: None)
  Receive Date: 20040423
  Receipt Date: 20031021
  Transmission Date: 20050107
  Serious: Yes (Hospitalization)
  Sender: FDA-Public Use
  Company Number: CIP03001915

PATIENT
  Age: 83 Year
  Sex: Female
  Weight: 58 kg

DRUGS (10)
  1. MACROBID [Suspect]
     Indication: URINARY TRACT INFECTION
     Dosage: 100 MG TWICE DAILY, ORAL
     Route: 048
     Dates: start: 20030623, end: 20030627
  2. LANOXIN [Concomitant]
  3. ACETYLSALICYLIC ACID (ACETYLSALICYCLIC ACID) [Concomitant]
  4. TENORMIN [Concomitant]
  5. MEPROBAMATE [Concomitant]
  6. MULTIVIT (VITAMINS NOS) [Concomitant]
  7. DONNATAL (PHENOBARBITAL, HYOSCYAMINE SULFATE, HYOSCINE HYDROBROMIDE, A [Concomitant]
  8. IBUPROFEN [Concomitant]
  9. CALCIUM [Concomitant]
  10. OXYBUTYNIN [Concomitant]

REACTIONS (10)
  - ALANINE AMINOTRANSFERASE INCREASED [None]
  - ASPARTATE AMINOTRANSFERASE INCREASED [None]
  - BLOOD ALKALINE PHOSPHATASE INCREASED [None]
  - BLOOD AMYLASE INCREASED [None]
  - BLOOD BILIRUBIN INCREASED [None]
  - HEPATITIS [None]
  - JAUNDICE [None]
  - LIPASE INCREASED [None]
  - MALAISE [None]
  - PYREXIA [None]
